FAERS Safety Report 5325503-7 (Version None)
Quarter: 2007Q2

REPORT INFORMATION
  Report Type: 
  Country: None (occurrence: None)
  Receive Date: 20070515
  Receipt Date: 20070504
  Transmission Date: 20071010
  Serious: Yes (Hospitalization)
  Sender: FDA-Public Use
  Company Number: FR-SANOFI-SYNTHELABO-A02200700984

PATIENT
  Age: 80 Year
  Sex: Female

DRUGS (6)
  1. FOSAMAX [Concomitant]
     Dosage: UNK
     Route: 065
  2. CORTANCYL [Concomitant]
     Dosage: UNK
     Route: 065
  3. CELEBREX [Concomitant]
     Dosage: UNK
     Route: 065
  4. TANGANIL [Concomitant]
     Dosage: UNK
     Route: 065
  5. OMEPRAZOLE [Concomitant]
     Dosage: UNK
     Route: 065
  6. PLAQUENIL [Suspect]
     Indication: POLYARTHRITIS
     Dosage: UNK
     Route: 048
     Dates: start: 20070210, end: 20070322

REACTIONS (2)
  - INTERSTITIAL LUNG DISEASE [None]
  - PULMONARY FIBROSIS [None]
